FAERS Safety Report 9726620 (Version 2)
Quarter: 2013Q4

REPORT INFORMATION
  Report Type: Spontaneous
  Country: JP (occurrence: None)
  Receive Date: 20131129
  Receipt Date: 20131230
  Transmission Date: 20140711
  Serious: Yes (Hospitalization)
  Sender: FDA-Public Use
  Company Number: SYM-2013-13165

PATIENT
  Age: 84 Year
  Sex: Male

DRUGS (5)
  1. HERBESSER [Suspect]
     Indication: PRODUCT USED FOR UNKNOWN INDICATION
     Dosage: 2 IN 1 D
     Route: 048
     Dates: start: 20131106, end: 20131107
  2. ROCEPHIN (CEFTRIAXONE SODIUM) (CEFTRIAXONE SODIUM) [Concomitant]
  3. ADOAIR (SERETIDE) (FLUTICASONE PROPIONATE, SALMETEROL XINAFOATE) [Concomitant]
  4. SPIRIVA (TIOTROPIUM BROMIDE) (TIOTROPIUM BROMIDE) [Concomitant]
  5. ZOPICLONE (ZOPICLONE) (ZOPICLONE) [Concomitant]

REACTIONS (5)
  - Blood potassium increased [None]
  - Chronic obstructive pulmonary disease [None]
  - Bronchitis [None]
  - Tachycardia [None]
  - Hyperkalaemia [None]
